FAERS Safety Report 5812152-7 (Version None)
Quarter: 2008Q3

REPORT INFORMATION
  Report Type: 
  Country: None (occurrence: None)
  Receive Date: 20080711
  Receipt Date: 20080626
  Transmission Date: 20090109
  Serious: Yes (Other)
  Sender: FDA-Public Use
  Company Number: TRP_05794_2008

PATIENT
  Age: 59 Year
  Sex: Female

DRUGS (2)
  1. ADVAFERON/INTERFERON ALFACON-1/ASTELLAS [Suspect]
     Indication: VIRAL HEPATITIS CARRIER
     Dosage: (18 MILLION IU QD SUBCUTANEOUS), (12 MILLION IU 3X/WEEK SU
     Route: 058
     Dates: start: 20071224, end: 20080601
  2. ADVAFERON/INTERFERON ALFACON-1/ASTELLAS [Suspect]
     Indication: VIRAL HEPATITIS CARRIER
     Dosage: (18 MILLION IU QD SUBCUTANEOUS), (12 MILLION IU 3X/WEEK SU
     Route: 058
     Dates: start: 20071211

REACTIONS (3)
  - HYPERGLYCAEMIA [None]
  - THIRST [None]
  - WEIGHT DECREASED [None]
